FAERS Safety Report 6151353-8 (Version None)
Quarter: 2009Q2

REPORT INFORMATION
  Report Type: 
  Country: None (occurrence: None)
  Receive Date: 20090410
  Receipt Date: 20090401
  Transmission Date: 20091009
  Serious: Yes (Other)
  Sender: FDA-Public Use
  Company Number: US-JNJFOC-20090401354

PATIENT
  Sex: Male
  Weight: 95.26 kg

DRUGS (2)
  1. EXTRA STRENGTH TYLENOL [Suspect]
  2. EXTRA STRENGTH TYLENOL [Suspect]
     Indication: INSOMNIA

REACTIONS (6)
  - CHILLS [None]
  - DYSPNOEA [None]
  - HYPERHIDROSIS [None]
  - INSOMNIA [None]
  - PRURITUS [None]
  - RESTLESSNESS [None]
